FAERS Safety Report 10641446 (Version 1)
Quarter: 2014Q4

REPORT INFORMATION
  Report Type: Spontaneous
  Country: US (occurrence: None)
  Receive Date: 20141208
  Receipt Date: 20141208
  Transmission Date: 20150529
  Serious: No
  Sender: FDA-Public Use
  Company Number: None

PATIENT
  Age: 68 Year
  Sex: Female

DRUGS (1)
  1. EXJADE [Suspect]
     Active Substance: DEFERASIROX
     Indication: IRON OVERLOAD
     Route: 048
     Dates: start: 201205

REACTIONS (5)
  - Hypoaesthesia [None]
  - Pain in extremity [None]
  - Swelling [None]
  - Musculoskeletal chest pain [None]
  - Dyspepsia [None]

NARRATIVE: CASE EVENT DATE: 201411
